FAERS Safety Report 4271744-X (Version None)
Quarter: 2004Q1

REPORT INFORMATION
  Report Type: 
  Country: None (occurrence: None)
  Receive Date: 20040113
  Receipt Date: 20031231
  Transmission Date: 20041129
  Serious: Yes (Hospitalization)
  Sender: FDA-Public Use
  Company Number: 04P-087-0246142-00

PATIENT
  Age: 65 Year
  Sex: Male

DRUGS (1)
  1. TRICOR [Suspect]
     Indication: HYPERLIPIDAEMIA
     Dosage: 150 MG, 2 IN 1 D, PER ORAL
     Route: 048
     Dates: start: 20030901

REACTIONS (2)
  - JAUNDICE [None]
  - LIVER DISORDER [None]
